FAERS Safety Report 5148985-2 (Version None)
Quarter: 2006Q4

REPORT INFORMATION
  Report Type: 
  Country: None (occurrence: None)
  Receive Date: 20061113
  Receipt Date: 20061031
  Transmission Date: 20070319
  Serious: Yes (Hospitalization, Other)
  Sender: FDA-Public Use
  Company Number: GB-PURDUE-DEU_2006_0002600

PATIENT
  Age: 58 Year
  Sex: Male
  Weight: 86 kg

DRUGS (8)
  1. OXYCODON 10MG / NALOXON 5MG [Suspect]
     Indication: BACK PAIN
     Dosage: 10 MG, TID
     Route: 048
     Dates: start: 20060805
  2. DIAZEPAM [Concomitant]
  3. BENDROFLUMETHIAZIDE [Concomitant]
  4. SIMVASTATIN [Concomitant]
  5. ALFUZOSIN HYDROCHLORIDE [Concomitant]
  6. OMEPRAZOLE [Concomitant]
  7. ACETAMINOPHEN [Concomitant]
  8. GABAPENTIN [Concomitant]

REACTIONS (1)
  - MYOCARDIAL INFARCTION [None]
